FAERS Safety Report 15867231 (Version 1)
Quarter: 2019Q1

REPORT INFORMATION
  Report Type: Spontaneous
  Country: US (occurrence: US)
  Receive Date: 20190125
  Receipt Date: 20190125
  Transmission Date: 20190417
  Serious: Yes (Other)
  Sender: FDA-Public Use
  Company Number: None

PATIENT
  Age: 33 Year
  Sex: Female
  Weight: 85.05 kg

DRUGS (1)
  1. DEXTROAMPHET SACCHARAT, AMPHET ASPARTATE, DEXTROAMPHET SULFATE AND AMPHET SULFAT [Suspect]
     Active Substance: AMPHETAMINE ASPARTATE\AMPHETAMINE SULFATE\DEXTROAMPHETAMINE SACCHARATE\DEXTROAMPHETAMINE SULFATE
     Indication: ATTENTION DEFICIT/HYPERACTIVITY DISORDER
     Dosage: ?          QUANTITY:1 TABLET(S);OTHER FREQUENCY:1 IN AM, 2 AT NOON;?
     Route: 048
     Dates: start: 20190124, end: 20190124

REACTIONS (6)
  - Product substitution issue [None]
  - Fatigue [None]
  - Therapy cessation [None]
  - Drug ineffective [None]
  - Irritability [None]
  - Migraine [None]

NARRATIVE: CASE EVENT DATE: 20190124
